FAERS Safety Report 9731173 (Version 1)
Quarter: 2013Q4

REPORT INFORMATION
  Report Type: Spontaneous
  Country: US (occurrence: US)
  Receive Date: 20131203
  Receipt Date: 20131203
  Transmission Date: 20140711
  Serious: Yes (Hospitalization, Other)
  Sender: FDA-Public Use
  Company Number: US-NOVOPROD-393715

PATIENT
  Age: 3 Year
  Sex: Male

DRUGS (1)
  1. NOVOSEVEN RT [Suspect]
     Indication: HAEMOPHILIA B WITHOUT INHIBITORS
     Route: 042

REACTIONS (3)
  - Cardiac disorder [Unknown]
  - Haemorrhage [Unknown]
  - Drug ineffective [Not Recovered/Not Resolved]
